FAERS Safety Report 7774441-9 (Version None)
Quarter: 2011Q3

REPORT INFORMATION
  Report Type: 
  Country: None (occurrence: None)
  Receive Date: 20110923
  Receipt Date: 20110913
  Transmission Date: 20111222
  Serious: Yes (Other)
  Sender: FDA-Public Use
  Company Number: RO-JNJFOC-20110906238

PATIENT
  Age: 60 Year
  Sex: Female
  Weight: 78 kg

DRUGS (8)
  1. ROSUVASTATIN [Concomitant]
     Route: 048
     Dates: start: 20081029
  2. PERINDOPRIL [Concomitant]
     Indication: HYPERTENSION
     Route: 048
     Dates: start: 20081029
  3. ESOMEPRAZOLE SODIUM [Concomitant]
     Indication: DYSPEPSIA
     Route: 048
     Dates: start: 20110712
  4. GOLIMUMAB [Suspect]
     Indication: RHEUMATOID ARTHRITIS
     Route: 058
     Dates: start: 20101019, end: 20110816
  5. INDAPAMID [Concomitant]
     Indication: HYPERTENSION
     Route: 048
     Dates: start: 20081028
  6. LAGOSA [Concomitant]
     Indication: DYSPEPSIA
     Route: 048
     Dates: start: 20110712
  7. LEFLUNOMIDE [Concomitant]
     Indication: RHEUMATOID ARTHRITIS
     Route: 048
     Dates: start: 20100825
  8. CARVEDILOL [Concomitant]
     Indication: HYPERTENSION
     Route: 048
     Dates: start: 20081029

REACTIONS (1)
  - HYPERSENSITIVITY [None]
